FAERS Safety Report 5890410-8 (Version None)
Quarter: 2008Q3

REPORT INFORMATION
  Report Type: 
  Country: None (occurrence: None)
  Receive Date: 20080921
  Receipt Date: 20080910
  Transmission Date: 20090109
  Serious: Yes (Other)
  Sender: FDA-Public Use
  Company Number: US-JNJFOC-20080704537

PATIENT
  Sex: Female
  Weight: 98.43 kg

DRUGS (9)
  1. REMICADE [Suspect]
     Dosage: ALSO REPORTED AS STOPPED 02-SEP-2008
     Route: 042
  2. REMICADE [Suspect]
     Indication: CROHN'S DISEASE
     Route: 042
  3. GLUCOPHAGE [Concomitant]
     Indication: DIABETES MELLITUS
  4. ALTACE [Concomitant]
     Indication: HYPERTENSION
  5. LIPITOR [Concomitant]
     Indication: BLOOD CHOLESTEROL INCREASED
  6. PENTASA [Concomitant]
     Indication: CROHN'S DISEASE
  7. PREVACID [Concomitant]
  8. LYRICA [Concomitant]
  9. ASPIRIN [Concomitant]

REACTIONS (1)
  - UTERINE CANCER [None]
